FAERS Safety Report 18065774 (Version 1)
Quarter: 2020Q3

REPORT INFORMATION
  Report Type: Spontaneous
  Country: US (occurrence: US)
  Receive Date: 20200724
  Receipt Date: 20200724
  Transmission Date: 20201103
  Serious: Yes (Hospitalization, Other)
  Sender: FDA-Public Use
  Company Number: US-MICRO LABS LIMITED-ML2020-02194

PATIENT
  Age: 32 Year
  Sex: Female

DRUGS (4)
  1. CLINDAMYCIN. [Suspect]
     Active Substance: CLINDAMYCIN
     Indication: ENDOMETRITIS
  2. AMPICILLIN [Suspect]
     Active Substance: AMPICILLIN
     Indication: ENDOMETRITIS
  3. GENTAMYCIN [Suspect]
     Active Substance: GENTAMICIN
     Indication: ENDOMETRITIS
  4. CEFTRIAXONE. [Concomitant]
     Active Substance: CEFTRIAXONE
     Indication: PYELONEPHRITIS
     Route: 042

REACTIONS (2)
  - Proteinuria [Recovered/Resolved]
  - Pancytopenia [Recovered/Resolved]
